FAERS Safety Report 11184578 (Version 3)
Quarter: 2015Q2

REPORT INFORMATION
  Report Type: Spontaneous
  Country: JP (occurrence: JP)
  Receive Date: 20150612
  Receipt Date: 20150626
  Transmission Date: 20150821
  Serious: Yes (Hospitalization)
  Sender: FDA-Public Use
  Company Number: JP-PFIZER INC-2015161192

PATIENT
  Age: 70 Year
  Sex: Male
  Weight: 66.98 kg

DRUGS (2)
  1. INLYTA [Suspect]
     Active Substance: AXITINIB
     Indication: RENAL CELL CARCINOMA
     Dosage: UNK UNK, 2X/DAY
     Route: 048
     Dates: start: 20150310, end: 20150419
  2. SUTENT [Suspect]
     Active Substance: SUNITINIB MALATE
     Indication: METASTATIC RENAL CELL CARCINOMA
     Dosage: UNK UNK, 1X/DAY
     Route: 048
     Dates: start: 20121016, end: 20150203

REACTIONS (3)
  - Nephrotic syndrome [Not Recovered/Not Resolved]
  - Metastatic renal cell carcinoma [Unknown]
  - Disease progression [Unknown]

NARRATIVE: CASE EVENT DATE: 20150407
